FAERS Safety Report 4362330-1 (Version None)
Quarter: 2004Q2

REPORT INFORMATION
  Report Type: 
  Country: None (occurrence: None)
  Receive Date: 20040520
  Receipt Date: 20040520
  Transmission Date: 20050107
  Serious: Yes (Life-Threatening)
  Sender: FDA-Public Use
  Company Number: None

PATIENT

DRUGS (1)
  1. CEFEPIME HYDROCHLORIDE [Suspect]

REACTIONS (2)
  - ANGIONEUROTIC OEDEMA [None]
  - RED MAN SYNDROME [None]
